FAERS Safety Report 5830997-4 (Version None)
Quarter: 2008Q3

REPORT INFORMATION
  Report Type: 
  Country: None (occurrence: None)
  Receive Date: 20080801
  Receipt Date: 20080514
  Transmission Date: 20090109
  Serious: No
  Sender: FDA-Public Use
  Company Number: US-BRISTOL-MYERS SQUIBB COMPANY-14107429

PATIENT

DRUGS (2)
  1. COUMADIN [Suspect]
     Indication: CARDIOVASCULAR DISORDER
     Dosage: DOSE INCREASED TO 7.5 MONDAY-FRIDAY + 10 SATURDAY-SUNDAY(UNITS NOT SPECIFIED)
  2. PREDNISONE [Suspect]

REACTIONS (1)
  - INTERNATIONAL NORMALISED RATIO DECREASED [None]
